FAERS Safety Report 13914875 (Version 1)
Quarter: 2017Q3

REPORT INFORMATION
  Report Type: Spontaneous
  Country: US (occurrence: US)
  Receive Date: 20170828
  Receipt Date: 20170828
  Transmission Date: 20171127
  Serious: Yes (Life-Threatening, Other)
  Sender: FDA-Public Use
  Company Number: None

PATIENT
  Age: 63 Year
  Sex: Female
  Weight: 90 kg

DRUGS (3)
  1. METHOCARBAMOL. [Concomitant]
     Active Substance: METHOCARBAMOL
  2. PREDNISONE. [Concomitant]
     Active Substance: PREDNISONE
  3. BENADRYL [Suspect]
     Active Substance: DIPHENHYDRAMINE HYDROCHLORIDE
     Indication: PRURITUS
     Dosage: ?          QUANTITY:48 TABLET(S);?
     Route: 048
     Dates: start: 20170827, end: 20170828

REACTIONS (6)
  - Heart rate increased [None]
  - Scratch [None]
  - Dyspnoea [None]
  - Sleep disorder [None]
  - Sleep talking [None]
  - Hallucination [None]

NARRATIVE: CASE EVENT DATE: 20170828
